FAERS Safety Report 26042731 (Version 1)
Quarter: 2025Q4

REPORT INFORMATION
  Report Type: Report from Study
  Country: US (occurrence: US)
  Receive Date: 20251113
  Receipt Date: 20251113
  Transmission Date: 20260117
  Serious: Yes (Other)
  Sender: ROCHE
  Company Number: US-ROCHE-10000288977

PATIENT
  Sex: Female

DRUGS (23)
  1. CELLCEPT [Suspect]
     Active Substance: MYCOPHENOLATE MOFETIL
     Indication: Polymyositis
     Route: 048
  2. CELLCEPT [Suspect]
     Active Substance: MYCOPHENOLATE MOFETIL
     Indication: Myopathy
     Dosage: TAKE 3 TAB BY MOUTH, PO TWICE DAILY
     Route: 048
  3. Ascorbic Acid (VITAMIN C) 1000 MG tablet [Concomitant]
     Route: 048
  4. aspirin 81 MG tablet [Concomitant]
     Route: 048
  5. Calcium Acetate, Phos Binder, (PHOSLO) 667 MG capsule [Concomitant]
     Dosage: TAKE 667 MG BY MOUTH 3 (THREE) TIMES DAILY WITH MEALS.
     Route: 048
  6. calcium polycarbophil (FIBERCON) 625 MG tablet [Concomitant]
     Route: 048
  7. Calcium-Magnesium-Vitamin D (CALCIUM MAGNESIUM PO) [Concomitant]
     Route: 048
  8. Coenzyme Q10 (CO Q10) 200 MG CAPS [Concomitant]
     Route: 048
  9. ergocalciferol (ERGOCALCIFEROL) 1.25 MG (50000 UT) capsule [Concomitant]
  10. fexofenadine (ALLEGRA) 180 MG tablet [Concomitant]
     Route: 048
  11. fluticasone (FLONASE) 50 MCG/ACT nasal spray [Concomitant]
  12. folic acid (FOLVITE) 1 MG tablet [Concomitant]
     Route: 048
  13. immune globulin, human, PRIVIGEN 10%  (PRIVIGEN) 40 GM/400ML SOLN [Concomitant]
     Dosage: INFUSE INTO THE VEIN 3 BOTTLES..
  14. insulin glargine (LANTUS) 100 UNIT/ML injection [Concomitant]
     Dosage: INJECT 10 UNITS INTO THE SKIN NIGHTLY
  15. loratadine (CLARITIN) 10 MG tablet [Concomitant]
     Route: 048
  16. metroNIDAZOLE (METROGEL) 0.75% gel [Concomitant]
  17. Omega-3 Fatty Acids (FISH OIL) 1000 MG capsule [Concomitant]
     Route: 048
  18. pantoprazole (PROTONIX) 40 MG tablet [Concomitant]
     Dosage: TAKE 1 TABLET BY MOUTH BEFORE BREAKFAST
     Route: 048
  19. predniSONE (DELTASONE) 5 MG tablet [Concomitant]
     Route: 048
  20. rosuvastatin (CRESTOR) 20 MG tablet [Concomitant]
     Route: 048
  21. simethicone (MYLICON) 125 MG chewable tablet [Concomitant]
     Dosage: CHEW 125 MG BY MOUTH EVERY 6 (SIX) HOURS AS NEEDED FOR FLATULENCE
     Route: 048
  22. traZODone (DESYREL) 50 MG tablet [Concomitant]
     Dosage: TAKE 150 MG BY MOUTH NIGHTLY
     Route: 048
  23. vitamin B-12 (CYANOCOBALAMIN) 100 MCG tablet [Concomitant]
     Dosage: TAKE 50 MCG BY MOUTH DAILY
     Route: 048

REACTIONS (4)
  - Off label use [Unknown]
  - Product prescribing error [Unknown]
  - No adverse event [Unknown]
  - Deafness [Unknown]
